FAERS Safety Report 8515497-5 (Version None)
Quarter: 2012Q3

REPORT INFORMATION
  Report Type: 
  Country: None (occurrence: None)
  Receive Date: 20120717
  Receipt Date: 20120713
  Transmission Date: 20120928
  Serious: Yes (Other)
  Sender: FDA-Public Use
  Company Number: US-PFIZER INC-2012169761

PATIENT
  Sex: Female
  Weight: 66.213 kg

DRUGS (9)
  1. CELEBREX [Suspect]
     Indication: ARTHRITIS
     Dosage: UNK
     Dates: start: 20080101
  2. ASPIRIN [Suspect]
     Indication: MYOCARDIAL INFARCTION
  3. LEVOTHYROXINE [Concomitant]
     Indication: THYROID DISORDER
     Dosage: 100 UG, DAILY
  4. LIPITOR [Suspect]
     Indication: BLOOD TRIGLYCERIDES INCREASED
  5. ASPIRIN [Suspect]
     Indication: CARDIAC FAILURE CONGESTIVE
     Dosage: 81 MG, DAILY
     Route: 048
     Dates: start: 19970101
  6. LIPITOR [Suspect]
     Indication: BLOOD CHOLESTEROL INCREASED
     Dosage: 50 MG, DAILY
     Dates: start: 20040101
  7. ISOSORBIDE [Concomitant]
     Indication: CARDIAC DISORDER
     Dosage: 90 MG, DAILY
     Route: 048
  8. NEXIUM [Concomitant]
     Indication: GASTROOESOPHAGEAL REFLUX DISEASE
     Dosage: 40 MG, DAILY
  9. NEXIUM [Concomitant]

REACTIONS (1)
  - MYOCARDIAL INFARCTION [None]
